FAERS Safety Report 7374537-X (Version None)
Quarter: 2011Q1

REPORT INFORMATION
  Report Type: 
  Country: None (occurrence: None)
  Receive Date: 20110325
  Receipt Date: 20100225
  Transmission Date: 20110831
  Serious: No
  Sender: FDA-Public Use
  Company Number: US-MYLANLABS-2010S1003363

PATIENT
  Sex: Male
  Weight: 99.79 kg

DRUGS (21)
  1. FENTANYL-100 [Suspect]
     Indication: INTERVERTEBRAL DISC PROTRUSION
     Dosage: Q72H
     Route: 062
     Dates: end: 20100126
  2. FENTANYL-100 [Suspect]
     Route: 062
     Dates: start: 20100101, end: 20100201
  3. FENTANYL-100 [Suspect]
     Route: 062
     Dates: start: 20100101, end: 20100201
  4. METHADONE [Suspect]
     Route: 048
     Dates: start: 20100205
  5. ZOFRAN [Concomitant]
  6. FENTANYL-100 [Suspect]
     Dosage: Q72H
     Route: 062
     Dates: start: 20100126
  7. AMITRIPTYLINE [Concomitant]
  8. METHADONE [Suspect]
     Indication: INTERVERTEBRAL DISC PROTRUSION
     Route: 048
     Dates: start: 20100126, end: 20100205
  9. HYDROCODONE BITARTRATE AND ACETAMINOPHEN [Concomitant]
  10. FENTANYL-100 [Suspect]
     Indication: PAIN
     Dosage: Q72H
     Route: 062
     Dates: end: 20100126
  11. FENTANYL-100 [Suspect]
     Dosage: Q72H
     Route: 062
     Dates: start: 20100126
  12. CLONAZEPAM [Concomitant]
  13. DOXYCYCLINE [Concomitant]
  14. BENTYL [Concomitant]
  15. METHADONE [Suspect]
     Route: 048
     Dates: start: 20100205
  16. NEXIUM [Concomitant]
  17. METHADONE [Suspect]
     Indication: PAIN
     Route: 048
     Dates: start: 20100126, end: 20100205
  18. PHENERGAN [Concomitant]
  19. BUPROPION HYDROCHLORIDE [Concomitant]
  20. CARAFATE [Concomitant]
  21. VITAMIN D [Concomitant]

REACTIONS (2)
  - DELUSIONAL PERCEPTION [None]
  - PAIN [None]
